FAERS Safety Report 7897583-6 (Version None)
Quarter: 2011Q4

REPORT INFORMATION
  Report Type: 
  Country: None (occurrence: None)
  Receive Date: 20111107
  Receipt Date: 20111101
  Transmission Date: 20120403
  Serious: Yes (Other)
  Sender: FDA-Public Use
  Company Number: US-PFIZER INC-2011267155

PATIENT
  Age: 73 Year
  Sex: Male

DRUGS (1)
  1. SUNITINIB MALATE [Suspect]
     Indication: GASTROINTESTINAL STROMAL TUMOUR
     Dosage: 37.5 MG, UNK

REACTIONS (4)
  - NAUSEA [None]
  - HYPERTENSION [None]
  - DYSPEPSIA [None]
  - PNEUMATOSIS INTESTINALIS [None]
